FAERS Safety Report 5776754-9 (Version None)
Quarter: 2008Q2

REPORT INFORMATION
  Report Type: 
  Country: None (occurrence: None)
  Receive Date: 20080618
  Receipt Date: 20080401
  Transmission Date: 20081010
  Serious: No
  Sender: FDA-Public Use
  Company Number: US-ASTRAZENECA-2008UW06547

PATIENT
  Age: 14 Year
  Sex: Male

DRUGS (3)
  1. SYMBICORT [Suspect]
     Route: 055
     Dates: end: 20080301
  2. ADVAIR DISKUS 100/50 [Concomitant]
  3. ADVAIR DISKUS 100/50 [Concomitant]
     Dates: start: 20080401

REACTIONS (1)
  - FATIGUE [None]
